FAERS Safety Report 26130942 (Version 1)
Quarter: 2025Q4

REPORT INFORMATION
  Report Type: Other
  Country: EU (occurrence: EU)
  Receive Date: 20251208
  Receipt Date: 20251208
  Transmission Date: 20260117
  Serious: Yes (Other)
  Sender: BIOCON
  Company Number: None

PATIENT

DRUGS (5)
  1. ADALIMUMAB [Suspect]
     Active Substance: ADALIMUMAB
     Indication: Psoriasis
     Dosage: 40 MILLIGRAM (40 MG SUBCUTANEOUSLY EVERY 15 DAYS)
     Route: 058
     Dates: start: 20251008, end: 20251029
  2. ADALIMUMAB [Suspect]
     Active Substance: ADALIMUMAB
  3. ADALIMUMAB [Suspect]
     Active Substance: ADALIMUMAB
  4. ADALIMUMAB [Suspect]
     Active Substance: ADALIMUMAB
  5. ADALIMUMAB [Suspect]
     Active Substance: ADALIMUMAB

REACTIONS (2)
  - Haemophagocytic lymphohistiocytosis [Recovered/Resolved]
  - Pancytopenia [Recovered/Resolved]

NARRATIVE: CASE EVENT DATE: 20251113
